FAERS Safety Report 23930513 (Version 2)
Quarter: 2024Q2

REPORT INFORMATION
  Report Type: Report from Study
  Country: US (occurrence: US)
  Receive Date: 20240602
  Receipt Date: 20240605
  Transmission Date: 20240715
  Serious: No
  Sender: FDA-Public Use
  Company Number: US-BIOGEN-2024BI01266838

PATIENT
  Age: 25 Year
  Sex: Female

DRUGS (1)
  1. ZURZUVAE [Suspect]
     Active Substance: ZURANOLONE
     Indication: Perinatal depression
     Route: 050
     Dates: start: 20240524, end: 20240530

REACTIONS (7)
  - Drooling [Unknown]
  - Balance disorder [Unknown]
  - Gait inability [Unknown]
  - Insomnia [Unknown]
  - Muscle twitching [Unknown]
  - Dizziness [Unknown]
  - Sedation [Unknown]

NARRATIVE: CASE EVENT DATE: 20240501
